FAERS Safety Report 19990931 (Version 2)
Quarter: 2021Q4

REPORT INFORMATION
  Report Type: Report from Study
  Country: US (occurrence: US)
  Receive Date: 20211025
  Receipt Date: 20211027
  Transmission Date: 20220303
  Serious: Yes (Hospitalization)
  Sender: FDA-Public Use
  Company Number: US-JNJFOC-20211044124

PATIENT
  Age: 21 Year
  Sex: Female
  Weight: 63.1 kg

DRUGS (4)
  1. INFLIXIMAB [Suspect]
     Active Substance: INFLIXIMAB
     Indication: Crohn^s disease
     Route: 042
     Dates: start: 20110601, end: 20110721
  2. INFLIXIMAB [Suspect]
     Active Substance: INFLIXIMAB
     Route: 042
     Dates: start: 20131125
  3. ERGOCALCIFEROL [Concomitant]
     Active Substance: ERGOCALCIFEROL
     Route: 065
  4. FERROUS SULFATE [Concomitant]
     Active Substance: FERROUS SULFATE
     Route: 065

REACTIONS (1)
  - Crohn^s disease [Recovered/Resolved]

NARRATIVE: CASE EVENT DATE: 20210925
